FAERS Safety Report 16693696 (Version 1)
Quarter: 2019Q3

REPORT INFORMATION
  Report Type: Report from Study
  Country: CA (occurrence: CA)
  Receive Date: 20190812
  Receipt Date: 20190812
  Transmission Date: 20191004
  Serious: Yes (Other)
  Sender: FDA-Public Use
  Company Number: CA-TEVA-2019-CA-1089345

PATIENT
  Age: 60 Year
  Sex: Male

DRUGS (5)
  1. BETAMETHASONE DIPROPIONATE/CALCIPOTRIOL [Concomitant]
     Indication: PRODUCT USED FOR UNKNOWN INDICATION
     Route: 065
  2. COSENTYX [Suspect]
     Active Substance: SECUKINUMAB
     Indication: PSORIASIS
     Route: 058
  3. REMICADE [Suspect]
     Active Substance: INFLIXIMAB
     Indication: PRODUCT USED FOR UNKNOWN INDICATION
     Route: 065
  4. METHOTREXATE. [Suspect]
     Active Substance: METHOTREXATE
     Indication: PRODUCT USED FOR UNKNOWN INDICATION
     Route: 065
  5. COSENTYX [Suspect]
     Active Substance: SECUKINUMAB
     Route: 058

REACTIONS (8)
  - Psoriasis [Unknown]
  - Skin plaque [Unknown]
  - Incorrect dose administered by device [Unknown]
  - Neuropathy peripheral [Unknown]
  - Injection site haemorrhage [Unknown]
  - Drug ineffective [Unknown]
  - Device malfunction [Unknown]
  - Injection site pain [Unknown]
